FAERS Safety Report 17878123 (Version 3)
Quarter: 2020Q3

REPORT INFORMATION
  Report Type: Spontaneous
  Country: JP (occurrence: JP)
  Receive Date: 20200609
  Receipt Date: 20200702
  Transmission Date: 20201103
  Serious: Yes (Hospitalization, Other)
  Sender: FDA-Public Use
  Company Number: JP-ABBVIE-20P-087-3436763-00

PATIENT
  Age: 86 Year
  Sex: Male
  Weight: 61 kg

DRUGS (3)
  1. LEUPLIN [Suspect]
     Active Substance: LEUPROLIDE ACETATE
     Indication: PROSTATE CANCER
     Dosage: 22.5 MILLIGRAM, Q6MONTHS
     Route: 065
     Dates: start: 20160621
  2. CASODEX [Concomitant]
     Active Substance: BICALUTAMIDE
     Indication: PROSTATE CANCER
     Dosage: 80 MILLIGRAM, QD
     Route: 048
     Dates: start: 20130917, end: 20160621
  3. LEUPLIN SR [Suspect]
     Active Substance: LEUPROLIDE ACETATE
     Indication: PROSTATE CANCER
     Dosage: 11.25 MILLIGRAM, Q3MONTHS
     Route: 058
     Dates: start: 20130917, end: 20160329

REACTIONS (2)
  - Gynaecomastia [Unknown]
  - Breast cancer male [Unknown]

NARRATIVE: CASE EVENT DATE: 20200602
